FAERS Safety Report 17940145 (Version 2)
Quarter: 2020Q3

REPORT INFORMATION
  Report Type: Report from Study
  Country: US (occurrence: US)
  Receive Date: 20200624
  Receipt Date: 20200707
  Transmission Date: 20201103
  Serious: Yes (Other)
  Sender: FDA-Public Use
  Company Number: US-ASTRAZENECA-2020SE78557

PATIENT
  Sex: Male

DRUGS (5)
  1. LYNPARZA [Suspect]
     Active Substance: OLAPARIB
     Indication: PROSTATE CANCER
     Dosage: 300 MG DAILY FOR 1 WEEK ON AND 1 WEEK OFF?ON WEEK OF CHEMOTHERAPY
     Route: 048
     Dates: start: 20200608
  2. GEMZAR [Concomitant]
     Active Substance: GEMCITABINE HYDROCHLORIDE
     Route: 042
  3. LYNPARZA [Suspect]
     Active Substance: OLAPARIB
     Indication: PROSTATE CANCER
     Route: 048
  4. CARBOPLATIN. [Concomitant]
     Active Substance: CARBOPLATIN
     Route: 042
  5. 5FU [Concomitant]
     Active Substance: FLUOROURACIL
     Route: 042

REACTIONS (6)
  - Nausea [Unknown]
  - Dysgeusia [Unknown]
  - Diarrhoea [Unknown]
  - Fatigue [Unknown]
  - Intentional product misuse [Not Recovered/Not Resolved]
  - Bone marrow disorder [Unknown]
